FAERS Safety Report 17161484 (Version 1)
Quarter: 2019Q4

REPORT INFORMATION
  Report Type: Spontaneous
  Country: DE (occurrence: DE)
  Receive Date: 20191216
  Receipt Date: 20191216
  Transmission Date: 20200122
  Serious: Yes (Other)
  Sender: FDA-Public Use
  Company Number: DE-SUN PHARMACEUTICAL INDUSTRIES LTD-2019RR-230977

PATIENT
  Sex: Female

DRUGS (1)
  1. CIPRO BASICS 500MG FILMTABLETTEN [Suspect]
     Active Substance: CIPROFLOXACIN HYDROCHLORIDE
     Indication: PRODUCT USED FOR UNKNOWN INDICATION
     Dosage: 1000 MILLIGRAM, DAILY
     Route: 065
     Dates: start: 201712, end: 201712

REACTIONS (13)
  - Cartilage injury [Unknown]
  - Tinnitus [Unknown]
  - Thyroid disorder [Unknown]
  - Visual impairment [Unknown]
  - Nerve injury [Unknown]
  - Tendon rupture [Unknown]
  - Asthenia [Unknown]
  - Renal impairment [Unknown]
  - Functional gastrointestinal disorder [Unknown]
  - Bone pain [Unknown]
  - Myalgia [Unknown]
  - Hypoaesthesia [Unknown]
  - Feeling abnormal [Unknown]
